FAERS Safety Report 9576600 (Version 1)
Quarter: 2013Q4

REPORT INFORMATION
  Report Type: Spontaneous
  Country: US (occurrence: US)
  Receive Date: 20131001
  Receipt Date: 20131001
  Transmission Date: 20140711
  Serious: No
  Sender: FDA-Public Use
  Company Number: US-AMGEN-USASP2013003744

PATIENT
  Age: 56 Year
  Sex: Female

DRUGS (9)
  1. ENBREL [Suspect]
     Indication: PRODUCT USED FOR UNKNOWN INDICATION
     Dosage: 50 MG, QWK
  2. CYMBALTA [Concomitant]
     Dosage: 20 MG, UNK
  3. PREDNISONE [Concomitant]
     Dosage: 10 MG, UNK
  4. LITHIUM CARBON [Concomitant]
     Dosage: 150 MG, UNK
  5. METHOTREXATE [Concomitant]
     Dosage: 2.5 MG, UNK
  6. ALENDRONATE [Concomitant]
     Dosage: 10 MG, UNK
  7. HYDROCHLOROTH [Concomitant]
     Dosage: 12.5 MG, UNK
  8. FOLIC ACID [Concomitant]
     Dosage: UNK
  9. NEURONTIN [Concomitant]
     Dosage: 300 MG, UNK

REACTIONS (3)
  - Productive cough [Unknown]
  - Rhinorrhoea [Unknown]
  - Malaise [Unknown]
